FAERS Safety Report 18347997 (Version 1)
Quarter: 2020Q4

REPORT INFORMATION
  Report Type: Spontaneous
  Country: CA (occurrence: CA)
  Receive Date: 20201006
  Receipt Date: 20201006
  Transmission Date: 20210114
  Serious: Yes (Life-Threatening, Hospitalization, Other)
  Sender: FDA-Public Use
  Company Number: CA-ACCORD-203860

PATIENT
  Age: 81 Year
  Sex: Female

DRUGS (1)
  1. LETROZOLE. [Suspect]
     Active Substance: LETROZOLE
     Indication: BREAST CANCER
     Route: 048

REACTIONS (5)
  - Angioedema [Unknown]
  - Mouth swelling [Unknown]
  - Swollen tongue [Unknown]
  - Stridor [Unknown]
  - SARS-CoV-2 test negative [Unknown]
